FAERS Safety Report 14245341 (Version 1)
Quarter: 2017Q4

REPORT INFORMATION
  Report Type: Spontaneous
  Country: US (occurrence: US)
  Receive Date: 20171202
  Receipt Date: 20171202
  Transmission Date: 20180321
  Serious: No
  Sender: FDA-Public Use
  Company Number: US-ENDO PHARMACEUTICALS INC-2017-004623

PATIENT
  Age: 64 Year
  Sex: Male
  Weight: 74.83 kg

DRUGS (5)
  1. ASPIRIN BAYER [Concomitant]
     Active Substance: ASPIRIN
     Indication: CARDIOVASCULAR EVENT PROPHYLAXIS
     Dosage: UNK
  2. XIAFLEX [Suspect]
     Active Substance: COLLAGENASE CLOSTRIDIUM HISTOLYTICUM
     Dosage: 0.58 MG, SECOND INJECTION CYCLE 1
     Route: 026
     Dates: start: 20170818, end: 20170818
  3. XIAFLEX [Suspect]
     Active Substance: COLLAGENASE CLOSTRIDIUM HISTOLYTICUM
     Indication: PEYRONIE^S DISEASE
     Dosage: 0.58 MG, FIRST INJECTION CYCLE 1
     Route: 026
     Dates: start: 20170815
  4. CIALIS [Concomitant]
     Active Substance: TADALAFIL
     Indication: ERECTILE DYSFUNCTION
     Dosage: UNK
  5. PENTOXIFYLLINE. [Concomitant]
     Active Substance: PENTOXIFYLLINE
     Indication: PEYRONIE^S DISEASE
     Dosage: UNK
     Dates: end: 201707

REACTIONS (5)
  - Spontaneous ejaculation [Recovered/Resolved]
  - Injection site swelling [Unknown]
  - Penile contusion [Recovering/Resolving]
  - Wrong technique in product usage process [Not Recovered/Not Resolved]
  - Genital contusion [Recovering/Resolving]

NARRATIVE: CASE EVENT DATE: 201708
